FAERS Safety Report 21789281 (Version 1)
Quarter: 2022Q4

REPORT INFORMATION
  Report Type: Spontaneous
  Country: US (occurrence: None)
  Receive Date: 20221227
  Receipt Date: 20221227
  Transmission Date: 20230113
  Serious: Yes (Death, Hospitalization)
  Sender: FDA-Public Use
  Company Number: None

PATIENT
  Age: 76 Year
  Sex: Female
  Weight: 111.4 kg

DRUGS (14)
  1. DAPAGLIFLOZIN [Suspect]
     Active Substance: DAPAGLIFLOZIN
     Indication: Diabetes mellitus
     Dosage: FREQUENCY : DAILY;?
     Route: 048
     Dates: start: 20220526, end: 20221103
  2. ALBUTEROL [Concomitant]
     Active Substance: ALBUTEROL
  3. ALBUTEROL SULFATE [Concomitant]
     Active Substance: ALBUTEROL SULFATE
  4. ALLOPURINOL [Concomitant]
     Active Substance: ALLOPURINOL
  5. BISOPROLOL [Concomitant]
     Active Substance: BISOPROLOL
  6. CLOPIDOGREL [Concomitant]
     Active Substance: CLOPIDOGREL BISULFATE
  7. FUROSEMIDE [Concomitant]
     Active Substance: FUROSEMIDE
  8. GABAPENTIN [Concomitant]
     Active Substance: GABAPENTIN
  9. GLIPIZIDE ER [Concomitant]
     Active Substance: GLIPIZIDE
  10. INSULIN HUMAN [Concomitant]
     Active Substance: INSULIN HUMAN
  11. LISINOPRIL [Concomitant]
     Active Substance: LISINOPRIL
  12. POTASSIUM CHLORIDE [Concomitant]
     Active Substance: POTASSIUM CHLORIDE
  13. ROSUVASTATIN [Concomitant]
     Active Substance: ROSUVASTATIN
  14. TRAMADOL [Concomitant]
     Active Substance: TRAMADOL

REACTIONS (8)
  - Blood glucose increased [None]
  - Glycosylated haemoglobin increased [None]
  - Wound [None]
  - Abscess [None]
  - Cellulitis [None]
  - Fournier^s gangrene [None]
  - Postoperative respiratory failure [None]
  - Post procedural complication [None]

NARRATIVE: CASE EVENT DATE: 20221103
